FAERS Safety Report 5727090-8 (Version None)
Quarter: 2008Q2

REPORT INFORMATION
  Report Type: 
  Country: None (occurrence: None)
  Receive Date: 20080505
  Receipt Date: 20080430
  Transmission Date: 20081010
  Serious: Yes (Hospitalization)
  Sender: FDA-Public Use
  Company Number: US-JNJFOC-20080500279

PATIENT
  Sex: Male
  Weight: 75.75 kg

DRUGS (3)
  1. CONCERTA [Suspect]
     Indication: ATTENTION DEFICIT/HYPERACTIVITY DISORDER
     Dosage: 2 X 36MG
     Route: 048
  2. WELLBUTRIN [Concomitant]
     Indication: DEPRESSION
     Route: 048
  3. SEROQUEL [Concomitant]
     Indication: HALLUCINATION
     Route: 048

REACTIONS (1)
  - SUICIDAL BEHAVIOUR [None]
